FAERS Safety Report 11325043 (Version 1)
Quarter: 2015Q3

REPORT INFORMATION
  Report Type: Spontaneous
  Country: US (occurrence: US)
  Receive Date: 20150730
  Receipt Date: 20150730
  Transmission Date: 20151125
  Serious: No
  Sender: FDA-Public Use
  Company Number: CHPA2015US009039

PATIENT
  Age: 77 Year
  Sex: Female

DRUGS (3)
  1. VOLTAREN [Suspect]
     Active Substance: DICLOFENAC SODIUM
     Indication: JOINT SWELLING
     Dosage: 2 G, UNK
     Route: 061
     Dates: start: 20150727
  2. VOLTAREN [Suspect]
     Active Substance: DICLOFENAC SODIUM
     Indication: EXOSTOSIS
     Dosage: UNK
     Route: 061
     Dates: start: 2010
  3. VOLTAREN [Suspect]
     Active Substance: DICLOFENAC SODIUM
     Indication: CYST

REACTIONS (7)
  - Cyst [Not Recovered/Not Resolved]
  - Chondropathy [Not Recovered/Not Resolved]
  - Tremor [Recovered/Resolved]
  - Foot deformity [Not Recovered/Not Resolved]
  - Therapeutic response unexpected [Unknown]
  - Product use issue [Unknown]
  - Incorrect dose administered [Unknown]

NARRATIVE: CASE EVENT DATE: 2010
